FAERS Safety Report 12210339 (Version 1)
Quarter: 2016Q1

REPORT INFORMATION
  Report Type: Spontaneous
  Country: US (occurrence: US)
  Receive Date: 20160325
  Receipt Date: 20160325
  Transmission Date: 20160526
  Serious: No
  Sender: FDA-Public Use
  Company Number: US-WEST-WARD PHARMACEUTICALS CORP.-2014P1001765

PATIENT
  Sex: Female
  Weight: 41.28 kg

DRUGS (6)
  1. PREDNISONE TABLETS USP 20MG [Suspect]
     Active Substance: PREDNISONE
     Indication: TEMPORAL ARTERITIS
     Route: 048
     Dates: start: 20131218, end: 20140207
  2. PREDNISONE TABLETS USP 20MG [Suspect]
     Active Substance: PREDNISONE
     Route: 048
     Dates: start: 20140208, end: 20140223
  3. PREDNISONE TABLETS USP 20MG [Suspect]
     Active Substance: PREDNISONE
     Route: 048
     Dates: start: 20140224
  4. PREDNISONE, 5 MG (WATSON) [Suspect]
     Active Substance: PREDNISONE
     Route: 048
     Dates: start: 20131218, end: 20140207
  5. PREDNISONE, 5 MG (WATSON) [Suspect]
     Active Substance: PREDNISONE
     Route: 048
     Dates: start: 20140208, end: 20140223
  6. PREDNISONE, 5 MG (WATSON) [Suspect]
     Active Substance: PREDNISONE
     Route: 048
     Dates: start: 20140224

REACTIONS (3)
  - Micturition urgency [Recovering/Resolving]
  - Gastrointestinal tract irritation [Recovering/Resolving]
  - Urinary incontinence [Recovering/Resolving]
